FAERS Safety Report 14098820 (Version 1)
Quarter: 2017Q4

REPORT INFORMATION
  Report Type: Spontaneous
  Country: US (occurrence: None)
  Receive Date: 20171016
  Receipt Date: 20171016
  Transmission Date: 20180321
  Serious: Yes (Hospitalization)
  Sender: FDA-Public Use
  Company Number: None

PATIENT
  Age: 54 Year
  Sex: Female
  Weight: 130.8 kg

DRUGS (13)
  1. ALBUTEROL PROAIR [Concomitant]
  2. NICOTNE PATCH [Concomitant]
  3. ONDANSETRON [Concomitant]
     Active Substance: ONDANSETRON
  4. APIXABAN [Suspect]
     Active Substance: APIXABAN
     Indication: DEEP VEIN THROMBOSIS
     Route: 048
     Dates: start: 20170929
  5. HCTZ [Concomitant]
     Active Substance: HYDROCHLOROTHIAZIDE
  6. HYDROCODONE-ACETAMINOPHEN [Concomitant]
     Active Substance: ACETAMINOPHEN\HYDROCODONE
  7. MULTIVITAMIN [Concomitant]
     Active Substance: VITAMINS
  8. BECLOMETHASONE [Concomitant]
     Active Substance: BECLOMETHASONE
  9. INSULIN ASPART [Concomitant]
     Active Substance: INSULIN ASPART
  10. METOPROLOL TARTRATE. [Concomitant]
     Active Substance: METOPROLOL TARTRATE
  11. ATORVASTATIN [Concomitant]
     Active Substance: ATORVASTATIN
  12. HYDROCORTISONE. [Concomitant]
     Active Substance: HYDROCORTISONE
  13. INSULIN GLARGINE [Concomitant]
     Active Substance: INSULIN GLARGINE

REACTIONS (6)
  - Vomiting [None]
  - Abdominal pain [None]
  - Depression [None]
  - Migraine [None]
  - Diarrhoea [None]
  - Nausea [None]

NARRATIVE: CASE EVENT DATE: 20171013
